FAERS Safety Report 11957309 (Version 1)
Quarter: 2016Q1

REPORT INFORMATION
  Report Type: Spontaneous
  Country: US (occurrence: US)
  Receive Date: 20160126
  Receipt Date: 20160126
  Transmission Date: 20160526
  Serious: No
  Sender: FDA-Public Use
  Company Number: US-BIOGEN-2016BI00168819

PATIENT
  Age: 46 Year

DRUGS (1)
  1. AVONEX [Suspect]
     Active Substance: INTERFERON BETA-1A
     Indication: MULTIPLE SCLEROSIS
     Route: 065
     Dates: start: 20151027

REACTIONS (2)
  - Micturition disorder [Recovered/Resolved]
  - Loss of control of legs [Recovered/Resolved with Sequelae]

NARRATIVE: CASE EVENT DATE: 20151202
